FAERS Safety Report 16625048 (Version 1)
Quarter: 2019Q3

REPORT INFORMATION
  Report Type: Spontaneous
  Country: US (occurrence: US)
  Receive Date: 20190724
  Receipt Date: 20190724
  Transmission Date: 20191004
  Serious: Yes (Hospitalization)
  Sender: FDA-Public Use
  Company Number: None

PATIENT
  Age: 35 Year
  Sex: Male
  Weight: 157.5 kg

DRUGS (1)
  1. DEBROX [Suspect]
     Active Substance: CARBAMIDE PEROXIDE
     Indication: CERUMEN REMOVAL

REACTIONS (3)
  - Oropharyngeal pain [None]
  - Drug hypersensitivity [None]
  - Mastication disorder [None]
